FAERS Safety Report 8337582 (Version 4)
Quarter: 2013Q1

REPORT INFORMATION
  Report Type: Spontaneous
  Country: US (occurrence: US)
  Receive Date: 20120116
  Receipt Date: 20130114
  Transmission Date: 20140127
  Serious: No
  Sender: FDA-Public Use
  Company Number: US-ELI_LILLY_AND_COMPANY-US201201002194

PATIENT
  Sex: Female
  Weight: 65.3 kg

DRUGS (5)
  1. FORTEO [Suspect]
     Indication: KYPHOSIS
     Dosage: 20 UG, QD
     Route: 065
     Dates: start: 201111
  2. FORTEO [Suspect]
     Dosage: 20 UG, QD
     Dates: start: 201111
  3. FORTEO [Suspect]
     Dosage: 20 UG, QD
     Dates: start: 201111
  4. CALCIUM [Concomitant]
     Indication: OSTEOPOROSIS
     Dosage: UNK
  5. VITAMIN D [Concomitant]
     Indication: OSTEOPOROSIS
     Dosage: UNK

REACTIONS (11)
  - Pain [Unknown]
  - Diarrhoea [Not Recovered/Not Resolved]
  - Weight decreased [Unknown]
  - Dizziness [Unknown]
  - Vertigo [Unknown]
  - Balance disorder [Unknown]
  - Rhinorrhoea [Unknown]
  - Hot flush [Not Recovered/Not Resolved]
  - Hypoaesthesia [Unknown]
  - Insomnia [Unknown]
  - Visual acuity reduced [Unknown]
